FAERS Safety Report 8218923-4 (Version None)
Quarter: 2012Q1

REPORT INFORMATION
  Report Type: 
  Country: None (occurrence: None)
  Receive Date: 20120319
  Receipt Date: 20120316
  Transmission Date: 20120608
  Serious: Yes (Life-Threatening, Hospitalization)
  Sender: FDA-Public Use
  Company Number: PHHY2012IN023374

PATIENT
  Sex: Male

DRUGS (3)
  1. DUOLIN [Concomitant]
  2. ONBREZ [Suspect]
     Dosage: 300 UG, UNK
  3. ONBREZ [Suspect]
     Indication: CHRONIC OBSTRUCTIVE PULMONARY DISEASE
     Dosage: 150 UG, UNK
     Dates: start: 20110324

REACTIONS (1)
  - OXYGEN CONSUMPTION DECREASED [None]
